FAERS Safety Report 20830482 (Version 2)
Quarter: 2022Q2

REPORT INFORMATION
  Report Type: Report from Study
  Country: BR (occurrence: BR)
  Receive Date: 20220514
  Receipt Date: 20220518
  Transmission Date: 20220721
  Serious: Yes (Disabling, Other)
  Sender: FDA-Public Use
  Company Number: BR-NOVARTISPH-NVSC2022BR110408

PATIENT
  Sex: Female

DRUGS (1)
  1. DIOVAN [Suspect]
     Active Substance: VALSARTAN
     Indication: Product used for unknown indication
     Dosage: 80 MG
     Route: 065

REACTIONS (5)
  - Aphasia [Unknown]
  - Dementia [Unknown]
  - Multiple sclerosis [Unknown]
  - Memory impairment [Unknown]
  - General physical health deterioration [Unknown]
